FAERS Safety Report 7867157-1 (Version None)
Quarter: 2011Q4

REPORT INFORMATION
  Report Type: 
  Country: None (occurrence: None)
  Receive Date: 20111028
  Receipt Date: 20111019
  Transmission Date: 20120403
  Serious: Yes (Other)
  Sender: FDA-Public Use
  Company Number: BR-GLAXOSMITHKLINE-A0950659A

PATIENT
  Sex: Male
  Weight: 67 kg

DRUGS (2)
  1. NICOTINE [Suspect]
     Indication: SMOKING CESSATION THERAPY
     Dosage: 21MG TWICE PER DAY
     Route: 062
     Dates: start: 20111018
  2. HALDOL [Concomitant]
     Indication: PSYCHOTIC DISORDER
     Dates: start: 19971022

REACTIONS (9)
  - HAEMATEMESIS [None]
  - INSOMNIA [None]
  - ABDOMINAL DISCOMFORT [None]
  - PERFORMANCE STATUS DECREASED [None]
  - FATIGUE [None]
  - ABDOMINAL PAIN [None]
  - DIZZINESS [None]
  - NAUSEA [None]
  - FLATULENCE [None]
